FAERS Safety Report 16757963 (Version 1)
Quarter: 2019Q3

REPORT INFORMATION
  Report Type: Spontaneous
  Country: US (occurrence: US)
  Receive Date: 20190830
  Receipt Date: 20190830
  Transmission Date: 20191005
  Serious: Yes (Death, Other)
  Sender: FDA-Public Use
  Company Number: US-SA-2019SA242262

PATIENT
  Sex: Male

DRUGS (3)
  1. NOVOLOG [Suspect]
     Active Substance: INSULIN ASPART
     Dosage: UNK UNK, UNK
     Route: 065
  2. LANTUS [Suspect]
     Active Substance: INSULIN GLARGINE
     Dosage: UNK UNK, UNK
     Route: 065
  3. HUMALOG [Suspect]
     Active Substance: INSULIN LISPRO
     Dosage: UNK UNK, UNK
     Route: 065

REACTIONS (11)
  - Sepsis [Fatal]
  - Respiratory rate increased [Unknown]
  - Hypertension [Unknown]
  - Cerebrovascular accident [Fatal]
  - Urinary tract infection [Fatal]
  - Hypotension [Unknown]
  - Parkinson^s disease [Fatal]
  - Dysphagia [Unknown]
  - Cardio-respiratory arrest [Fatal]
  - Cardiac disorder [Fatal]
  - Blood glucose increased [Unknown]
